FAERS Safety Report 5534478-7 (Version None)
Quarter: 2007Q4

REPORT INFORMATION
  Report Type: 
  Country: None (occurrence: None)
  Receive Date: 20071205
  Receipt Date: 20071126
  Transmission Date: 20080405
  Serious: Yes (Hospitalization)
  Sender: FDA-Public Use
  Company Number: FR-ASTRAZENECA-2007CG01675

PATIENT
  Age: 21595 Day
  Sex: Female
  Weight: 60 kg

DRUGS (11)
  1. FASLODEX [Suspect]
     Indication: BREAST CANCER METASTATIC
     Route: 030
     Dates: start: 20070301, end: 20071012
  2. TAXOTERE [Suspect]
     Indication: BREAST CANCER METASTATIC
     Route: 042
     Dates: start: 20071017, end: 20071017
  3. TRIFLUCAN [Suspect]
     Indication: OROPHARYNGEAL CANDIDIASIS
     Route: 048
     Dates: start: 20071022, end: 20071102
  4. OMEPRAZOLE [Concomitant]
     Route: 048
  5. RAMIPRIL [Concomitant]
     Route: 048
  6. PREVISCAN [Concomitant]
     Route: 048
  7. SEROPRAM [Concomitant]
     Route: 048
  8. LEXOMIL [Concomitant]
     Route: 048
  9. NEUPOGEN [Concomitant]
     Indication: AGRANULOCYTOSIS
     Route: 058
     Dates: start: 20071024, end: 20071026
  10. TAZOCILLINE [Concomitant]
     Indication: PYELONEPHRITIS ACUTE
     Route: 042
     Dates: start: 20071024, end: 20071026
  11. AMIKACIN [Concomitant]
     Indication: PYELONEPHRITIS ACUTE
     Route: 042
     Dates: start: 20071024, end: 20071027

REACTIONS (2)
  - ANAEMIA [None]
  - THROMBOCYTOPENIA [None]
